FAERS Safety Report 12823435 (Version 2)
Quarter: 2016Q4

REPORT INFORMATION
  Report Type: Spontaneous
  Country: US (occurrence: US)
  Receive Date: 20161007
  Receipt Date: 20161026
  Transmission Date: 20170207
  Serious: No
  Sender: FDA-Public Use
  Company Number: US-HORIZON-KRY-0028-2016

PATIENT
  Age: 52 Year
  Sex: Male

DRUGS (1)
  1. KRYSTEXXA [Suspect]
     Active Substance: PEGLOTICASE
     Indication: GOUT
     Dosage: RECEIVED 2 INFUSIONS IN TOTAL
     Route: 042

REACTIONS (1)
  - Hypertension [Unknown]
